FAERS Safety Report 19232675 (Version 1)
Quarter: 2021Q2

REPORT INFORMATION
  Report Type: Spontaneous
  Country: GB (occurrence: GB)
  Receive Date: 20210507
  Receipt Date: 20210507
  Transmission Date: 20210717
  Serious: Yes (Other)
  Sender: FDA-Public Use
  Company Number: GB-MYLANLABS-2021M1026745

PATIENT
  Age: 58 Year
  Sex: Male
  Weight: 109 kg

DRUGS (9)
  1. NAPROXEN. [Suspect]
     Active Substance: NAPROXEN
     Indication: PRODUCT USED FOR UNKNOWN INDICATION
     Dosage: 500 MILLIGRAM
     Dates: start: 20210429
  2. BUMETANIDE. [Concomitant]
     Active Substance: BUMETANIDE
     Indication: ILL-DEFINED DISORDER
     Dosage: TAKE ONE EACH MORNING
     Dates: start: 20201106
  3. NAPROXEN. [Concomitant]
     Active Substance: NAPROXEN
     Indication: ILL-DEFINED DISORDER
     Dosage: TAKE ONE TWICE DAILY AFTER FOOD
     Dates: start: 20210420
  4. AMLODIPINE [Concomitant]
     Active Substance: AMLODIPINE BESYLATE
     Indication: ILL-DEFINED DISORDER
     Dosage: TAKE ONE DAILY
     Dates: start: 20200520
  5. FLUCLOXACILLIN [Concomitant]
     Active Substance: FLUCLOXACILLIN
     Indication: ILL-DEFINED DISORDER
     Dosage: TAKE ONE 4 TIMES/DAY
     Dates: start: 20210420, end: 20210427
  6. OMEPRAZOLE. [Concomitant]
     Active Substance: OMEPRAZOLE
     Indication: ILL-DEFINED DISORDER
     Dosage: TAKE ONE DAILY
     Dates: start: 20210420
  7. XYLOCAINE [Concomitant]
     Active Substance: LIDOCAINE HYDROCHLORIDE
     Indication: ILL-DEFINED DISORDER
     Dosage: USE AS DIRECTED
     Dates: start: 20210421, end: 20210422
  8. METFORMIN [Concomitant]
     Active Substance: METFORMIN HYDROCHLORIDE
     Indication: ILL-DEFINED DISORDER
     Dosage: TAKE ONE 2 TIMES/DAY
     Dates: start: 20200520
  9. RAMIPRIL. [Concomitant]
     Active Substance: RAMIPRIL
     Indication: ILL-DEFINED DISORDER
     Dosage: 1 AT BEDTIME AS DIRECTED
     Dates: start: 20200520

REACTIONS (1)
  - Blister [Recovered/Resolved]

NARRATIVE: CASE EVENT DATE: 20210429
